FAERS Safety Report 5771681-5 (Version None)
Quarter: 2008Q2

REPORT INFORMATION
  Report Type: 
  Country: None (occurrence: None)
  Receive Date: 20080611
  Receipt Date: 20080602
  Transmission Date: 20081010
  Serious: Yes (Hospitalization)
  Sender: FDA-Public Use
  Company Number: 2008JP001788

PATIENT
  Age: 46 Year
  Sex: Female
  Weight: 41.78 kg

DRUGS (6)
  1. TACROLIMUS [Suspect]
     Indication: LUPUS NEPHRITIS
     Dosage: 2 MG, /D, ORAL; 3 MG, /D, ORAL
     Route: 048
     Dates: start: 20080314, end: 20080320
  2. TACROLIMUS [Suspect]
     Indication: LUPUS NEPHRITIS
     Dosage: 2 MG, /D, ORAL; 3 MG, /D, ORAL
     Route: 048
     Dates: start: 20080321, end: 20080326
  3. METHYLPREDNISOLONE [Concomitant]
  4. GASTER D ORODISPERSIBLE CR TABLET [Concomitant]
  5. BACTAR (SULFAMETHOXAZOLE, TRIMETHOPRIM) [Concomitant]
  6. PURSENNID (SENNOSIDE A+B) [Concomitant]

REACTIONS (5)
  - CONDITION AGGRAVATED [None]
  - ENTEROCOLITIS [None]
  - INTESTINAL ISCHAEMIA [None]
  - LARGE INTESTINAL ULCER [None]
  - SYSTEMIC LUPUS ERYTHEMATOSUS [None]
